FAERS Safety Report 10177753 (Version 1)
Quarter: 2014Q2

REPORT INFORMATION
  Report Type: Spontaneous
  Country: US (occurrence: US)
  Receive Date: 20140516
  Receipt Date: 20140516
  Transmission Date: 20141212
  Serious: Yes (Other)
  Sender: FDA-Public Use
  Company Number: US-SANOFI-AVENTIS-2013SA061972

PATIENT
  Age: 49 Year
  Sex: Male

DRUGS (2)
  1. APIDRA [Suspect]
     Indication: TYPE 1 DIABETES MELLITUS
     Dosage: 100-125 UNITS
     Route: 058
  2. HUMULIN R [Concomitant]

REACTIONS (1)
  - Hyperglycaemia [Recovered/Resolved]
